FAERS Safety Report 4906121-9 (Version None)
Quarter: 2006Q1

REPORT INFORMATION
  Report Type: 
  Country: None (occurrence: None)
  Receive Date: 20060207
  Receipt Date: 20060207
  Transmission Date: 20060701
  Serious: Yes (Hospitalization)
  Sender: FDA-Public Use
  Company Number: None

PATIENT
  Age: 91 Year
  Sex: Male
  Weight: 62.1428 kg

DRUGS (1)
  1. MAXIPIME [Suspect]
     Indication: URINARY TRACT INFECTION
     Dosage: 2 GM Q24HOURS IV
     Route: 042
     Dates: start: 20060124, end: 20060131

REACTIONS (3)
  - LETHARGY [None]
  - LOSS OF CONSCIOUSNESS [None]
  - NONSPECIFIC REACTION [None]
